FAERS Safety Report 7130698-9 (Version None)
Quarter: 2010Q4

REPORT INFORMATION
  Report Type: 
  Country: None (occurrence: None)
  Receive Date: 20101201
  Receipt Date: 20101124
  Transmission Date: 20110411
  Serious: Yes (Hospitalization)
  Sender: FDA-Public Use
  Company Number: JP-SANOFI-AVENTIS-2010SA070170

PATIENT
  Age: 76 Year
  Sex: Male
  Weight: 79.4 kg

DRUGS (14)
  1. PLAVIX [Suspect]
     Indication: ANGINA PECTORIS
     Route: 048
     Dates: start: 20090201, end: 20101102
  2. PLAVIX [Suspect]
     Route: 048
     Dates: start: 20090201, end: 20101102
  3. ASPIRIN [Concomitant]
     Route: 048
     Dates: start: 20090201, end: 20101102
  4. ASPIRIN [Concomitant]
     Indication: ANGINA PECTORIS
     Route: 048
     Dates: start: 20090201, end: 20101102
  5. PLETAL [Concomitant]
  6. ANCARON [Concomitant]
     Route: 048
     Dates: start: 20090201, end: 20101102
  7. AMARYL [Concomitant]
     Indication: DIABETES MELLITUS
     Dosage: DOSE: TWO AND A HALF 2.5-MG TABLETS
     Route: 048
     Dates: start: 20090201, end: 20101102
  8. MIGLITOL [Concomitant]
     Indication: DIABETES MELLITUS
     Route: 048
     Dates: start: 20090201, end: 20101102
  9. THYRADIN [Concomitant]
     Indication: HYPOTHYROIDISM
     Dosage: DOSE: ONE AND A HALF 50-MCG TABLETS
     Route: 048
     Dates: start: 20090201, end: 20101102
  10. HYDROCHLOROTHIAZIDE/LOSARTAN POTASSIUM [Concomitant]
     Indication: HYPERTENSION
     Route: 048
     Dates: start: 20090201, end: 20101102
  11. ARTIST [Concomitant]
     Route: 048
     Dates: start: 20090201, end: 20101102
  12. LIPITOR [Concomitant]
  13. SIGMART [Concomitant]
  14. TAKEPRON [Concomitant]

REACTIONS (3)
  - COUGH [None]
  - DYSPNOEA [None]
  - INTERSTITIAL LUNG DISEASE [None]
